FAERS Safety Report 18227576 (Version 1)
Quarter: 2020Q3

REPORT INFORMATION
  Report Type: Spontaneous
  Country: IT (occurrence: IT)
  Receive Date: 20200903
  Receipt Date: 20200903
  Transmission Date: 20201103
  Serious: Yes (Hospitalization)
  Sender: FDA-Public Use
  Company Number: IT-MYLANLABS-2020M1076034

PATIENT
  Age: 8 Year
  Sex: Male

DRUGS (25)
  1. CETIRIZINE [Suspect]
     Active Substance: CETIRIZINE HYDROCHLORIDE
     Indication: DERMATITIS ATOPIC
     Route: 065
  2. CETIRIZINE [Suspect]
     Active Substance: CETIRIZINE HYDROCHLORIDE
     Indication: CONJUNCTIVAL DISORDER
  3. KETOTIFEN [Suspect]
     Active Substance: KETOTIFEN
     Indication: VERNAL KERATOCONJUNCTIVITIS
  4. FLUOCINOLONE [Suspect]
     Active Substance: FLUOCINOLONE
     Indication: VERNAL KERATOCONJUNCTIVITIS
  5. KETOTIFEN [Suspect]
     Active Substance: KETOTIFEN
     Indication: VERNAL KERATOCONJUNCTIVITIS
     Dosage: EYE DROPS
     Route: 047
  6. CYCLOSPORINE. [Suspect]
     Active Substance: CYCLOSPORINE
     Indication: VERNAL KERATOCONJUNCTIVITIS
     Dosage: 50 MILLIGRAM
     Route: 048
  7. PREDNISONE. [Suspect]
     Active Substance: PREDNISONE
     Indication: VERNAL KERATOCONJUNCTIVITIS
     Dosage: 5 MILLIGRAM, QD, ORAL THERAPY TO BE TAKEN 5 DAYS/WEEK
     Route: 048
  8. PREDNISONE. [Suspect]
     Active Substance: PREDNISONE
     Dosage: 5 MILLIGRAM, BID, 5 MG/TWICE DAILY (BID)
     Route: 048
     Dates: start: 201703
  9. FLUOCINOLONE [Suspect]
     Active Substance: FLUOCINOLONE
     Indication: CONJUNCTIVITIS
     Dosage: LOW?DOSE
     Route: 061
  10. BETAMETHASONE. [Concomitant]
     Active Substance: BETAMETHASONE
     Indication: KERATITIS
  11. KETOTIFEN [Suspect]
     Active Substance: KETOTIFEN
     Indication: CONJUNCTIVITIS
     Route: 065
  12. NEDOCROMIL [Suspect]
     Active Substance: NEDOCROMIL
     Indication: VERNAL KERATOCONJUNCTIVITIS
  13. CYCLOSPORINE. [Suspect]
     Active Substance: CYCLOSPORINE
     Indication: VERNAL KERATOCONJUNCTIVITIS
     Route: 061
  14. PREDNISONE. [Suspect]
     Active Substance: PREDNISONE
     Dosage: 5 MILLIGRAM, QD, REDUCED TO ONCE A DAY
     Route: 048
     Dates: start: 2017
  15. CETIRIZINE [Suspect]
     Active Substance: CETIRIZINE HYDROCHLORIDE
     Indication: CONJUNCTIVITIS
  16. OMALIZUMAB. [Concomitant]
     Active Substance: OMALIZUMAB
     Indication: VERNAL KERATOCONJUNCTIVITIS
     Dosage: 300 MILLIGRAM, MONTHLY
     Route: 058
     Dates: start: 201703, end: 201809
  17. PREDNISONE. [Suspect]
     Active Substance: PREDNISONE
     Dosage: REDUCTION OF PREDNISONE TO ALTERNATE DAYS
     Route: 048
  18. LEVOCETIRIZINE [Suspect]
     Active Substance: LEVOCETIRIZINE
     Indication: CONJUNCTIVITIS
     Route: 065
  19. CYCLOSPORINE. [Suspect]
     Active Substance: CYCLOSPORINE
     Dosage: ORAL FORMULATION WAS REINTRODUCED 6 DAYS/WEEK FOR WORSENING OF SYMPTOMS
     Route: 048
  20. KETOTIFEN [Suspect]
     Active Substance: KETOTIFEN
     Indication: VERNAL KERATOCONJUNCTIVITIS
     Dosage: 2 MILLIGRAM, QD, ORAL THERAPY TO BE TAKEN 5 DAYS/WEEK
     Route: 048
  21. MOMETASONE FUROATE. [Suspect]
     Active Substance: MOMETASONE FUROATE
     Indication: CONJUNCTIVITIS
     Dosage: TOPICAL MOMETASONE NASAL SPRAY DURING SPRING AND SUMMER MONTHS
     Route: 061
  22. NEDOCROMIL [Suspect]
     Active Substance: NEDOCROMIL
     Indication: CONJUNCTIVITIS
     Dosage: EYE DROPS
     Route: 047
  23. BETAMETHASONE. [Concomitant]
     Active Substance: BETAMETHASONE
     Indication: ULCERATIVE KERATITIS
  24. LEVOCETIRIZINE [Suspect]
     Active Substance: LEVOCETIRIZINE
     Indication: CONJUNCTIVAL DISORDER
  25. BETAMETHASONE. [Concomitant]
     Active Substance: BETAMETHASONE
     Indication: EYE INFLAMMATION
     Route: 065

REACTIONS (2)
  - Ocular hypertension [Unknown]
  - Drug ineffective [Unknown]
